FAERS Safety Report 9290949 (Version 1)
Quarter: 2013Q2

REPORT INFORMATION
  Report Type: Spontaneous
  Country: US (occurrence: None)
  Receive Date: 20130513
  Receipt Date: 20130513
  Transmission Date: 20140414
  Serious: Yes (Other)
  Sender: FDA-Public Use
  Company Number: 7208217

PATIENT
  Age: 45 Year
  Sex: Female

DRUGS (4)
  1. EUTHROX (LEVOTHROXINE SODIUM) (LEVOTHYROXINE SODIUM), 156525 [Suspect]
     Indication: HYPERTHYROIDISM
     Dosage: 175 MG (175 MG, IN FAST)?
     Dates: start: 20130413
  2. LANSOPRAZOLE (LANSOPRAZOLE ) (LANSOPRAZOLE) [Concomitant]
  3. GLIFAGE (METFORMIN) (METFORMIN) [Concomitant]
  4. AMYTRIL (AMITRIPTYLINE HYDROCHLORIDE) (AMITRIPTYLINE HYDROCHLORIDE) [Concomitant]

REACTIONS (10)
  - Migraine [None]
  - Thyroidectomy [None]
  - Blood pressure increased [None]
  - Malaise [None]
  - Somnolence [None]
  - Pain in extremity [None]
  - Insomnia [None]
  - Increased appetite [None]
  - Irritability [None]
  - Feeling hot [None]
